FAERS Safety Report 9603713 (Version 2)
Quarter: 2013Q4

REPORT INFORMATION
  Report Type: Report from Study
  Country: US (occurrence: US)
  Receive Date: 20131007
  Receipt Date: 20131023
  Transmission Date: 20140711
  Serious: Yes (Hospitalization)
  Sender: FDA-Public Use
  Company Number: US-ROCHE-1285245

PATIENT
  Age: 63 Year
  Sex: Male
  Weight: 77 kg

DRUGS (7)
  1. RITUXIMAB [Suspect]
     Indication: MALIGNANT LYMPHOID NEOPLASM
     Dosage: DATE OF MOST RECENT DOSE PRIOR TO SAE: 17/JUN/2013
     Route: 042
     Dates: start: 20130603
  2. METHOTREXATE [Suspect]
     Indication: MALIGNANT LYMPHOID NEOPLASM
     Dosage: DATE OF MOST RECENT DOSE PRIOR TO SAE: 12/JUN/2013
     Route: 042
     Dates: start: 20130604
  3. TENIPOSIDE [Suspect]
     Indication: MALIGNANT LYMPHOID NEOPLASM
     Dosage: DATE OF MOST RECENT DOSE PRIOR TO SAE: 06/JUN/2013
     Route: 042
     Dates: start: 20130605
  4. CARMUSTINE [Suspect]
     Indication: MALIGNANT LYMPHOID NEOPLASM
     Route: 042
     Dates: start: 20130607
  5. PREDNISOLONE [Suspect]
     Indication: MALIGNANT LYMPHOID NEOPLASM
     Route: 048
     Dates: start: 20130604
  6. FLUCONAZOLE [Concomitant]
     Route: 048
     Dates: start: 20130503
  7. CIPROFLOXACIN [Concomitant]

REACTIONS (2)
  - Febrile neutropenia [Recovered/Resolved]
  - Pulmonary embolism [Recovered/Resolved]
